FAERS Safety Report 11968853 (Version 1)
Quarter: 2016Q1

REPORT INFORMATION
  Report Type: Spontaneous
  Country: US (occurrence: None)
  Receive Date: 20160127
  Receipt Date: 20160127
  Transmission Date: 20160526
  Serious: No
  Sender: FDA-Public Use
  Company Number: None

PATIENT
  Age: 22 Year
  Sex: Female
  Weight: 52.16 kg

DRUGS (3)
  1. BUPAP [Concomitant]
     Active Substance: ACETAMINOPHEN\BUTALBITAL
  2. LORAZEPAM (ATIVAN) [Concomitant]
  3. LEXAPRO GENERIC 10MG [Suspect]
     Active Substance: ESCITALOPRAM OXALATE
     Indication: ANXIETY
     Route: 048
     Dates: start: 20160123, end: 20160123

REACTIONS (5)
  - Nausea [None]
  - Skin burning sensation [None]
  - Headache [None]
  - Skin warm [None]
  - Hypersensitivity [None]

NARRATIVE: CASE EVENT DATE: 20160124
